FAERS Safety Report 18663564 (Version 1)
Quarter: 2020Q4

REPORT INFORMATION
  Report Type: Spontaneous
  Country: DK (occurrence: DK)
  Receive Date: 20201224
  Receipt Date: 20201224
  Transmission Date: 20210114
  Serious: Yes (Hospitalization)
  Sender: FDA-Public Use
  Company Number: DK-GILEAD-2020-0510450

PATIENT
  Age: 63 Year
  Sex: Male

DRUGS (6)
  1. DEXAMETASON ^ABCUR^ [Concomitant]
     Indication: COVID-19
     Dosage: DOSAGE: UNKNOWN. STRENGTH: UNKNOWN
     Route: 048
     Dates: start: 20201121, end: 20201126
  2. GREPID [Concomitant]
     Active Substance: CLOPIDOGREL BESILATE
     Indication: THROMBOSIS PROPHYLAXIS
     Dosage: STRENGTH: 75 MG
     Route: 048
     Dates: start: 20201121
  3. OXYCODONE ^TEVA^ [Concomitant]
     Indication: PAIN
     Dosage: DOSAGE: MAX 6 TIMES DAILY. STRENGTH: 5 MG
     Route: 048
     Dates: start: 20201121
  4. REMDESIVIR. [Suspect]
     Active Substance: REMDESIVIR
     Indication: COVID-19
     Dosage: 200 MG
     Route: 065
     Dates: start: 20201121, end: 20201121
  5. REMDESIVIR. [Suspect]
     Active Substance: REMDESIVIR
     Dosage: 100 MG, QD
     Route: 065
     Dates: start: 20201122, end: 20201125
  6. SILDENAFIL ^MYLAN^ [Concomitant]
     Indication: ERECTILE DYSFUNCTION
     Dosage: DOSAGE: MAX 2 TIMES A DAY. STRENGTH: 50 MG
     Route: 048
     Dates: start: 20201120

REACTIONS (2)
  - Urticaria [Not Recovered/Not Resolved]
  - Rash papular [Unknown]

NARRATIVE: CASE EVENT DATE: 20201129
